FAERS Safety Report 11126477 (Version 2)
Quarter: 2015Q3

REPORT INFORMATION
  Report Type: Spontaneous
  Country: FR (occurrence: FR)
  Receive Date: 20150520
  Receipt Date: 20150825
  Transmission Date: 20151125
  Serious: Yes (Death, Life-Threatening, Hospitalization, Other)
  Sender: FDA-Public Use
  Company Number: FR-ASTRAZENECA-2015SE45890

PATIENT
  Age: 23389 Day
  Sex: Female

DRUGS (7)
  1. LEVOFLOXACINE ARROW [Suspect]
     Active Substance: LEVOFLOXACIN
     Route: 042
     Dates: start: 20150202
  2. HEPARIN SODIUM PANPHARMA [Suspect]
     Active Substance: HEPARIN SODIUM
     Dosage: TARGET VALUE OF APTT: 2.5T
     Route: 042
     Dates: start: 20141230, end: 20150216
  3. CALCIDOSE VITAMIN D3 [Suspect]
     Active Substance: CALCIUM CARBONATE\CHOLECALCIFEROL
     Dosage: ONE SACHET PER DAY
     Route: 048
     Dates: start: 20150207, end: 20150213
  4. MIANSERINE ARROW [Suspect]
     Active Substance: MIANSERIN HYDROCHLORIDE
     Route: 048
     Dates: start: 20150110
  5. LEVOTHYROX [Concomitant]
     Active Substance: LEVOTHYROXINE
  6. INEXIUM [Suspect]
     Active Substance: ESOMEPRAZOLE
     Route: 048
     Dates: start: 20141229
  7. TYGACIL [Suspect]
     Active Substance: TIGECYCLINE
     Route: 042
     Dates: start: 20150204, end: 20150214

REACTIONS (9)
  - Multi-organ failure [Fatal]
  - Extremity necrosis [Unknown]
  - Stenotrophomonas infection [Unknown]
  - Gastrointestinal haemorrhage [Unknown]
  - Ascites [Unknown]
  - Renal failure [Unknown]
  - Acute respiratory distress syndrome [Unknown]
  - Pancreatitis acute [Fatal]
  - Gastrointestinal ischaemia [Unknown]

NARRATIVE: CASE EVENT DATE: 20150212
